FAERS Safety Report 6460042-1 (Version None)
Quarter: 2009Q4

REPORT INFORMATION
  Report Type: 
  Country: None (occurrence: None)
  Receive Date: 20091129
  Receipt Date: 20091120
  Transmission Date: 20100525
  Serious: Yes (Hospitalization)
  Sender: FDA-Public Use
  Company Number: PHHO2009BE12574

PATIENT
  Sex: Male
  Weight: 82 kg

DRUGS (6)
  1. CERTICAN [Suspect]
     Indication: RENAL TRANSPLANT
     Dosage: 3 MG
     Route: 048
     Dates: start: 20090124, end: 20091007
  2. MYFORTIC [Concomitant]
     Indication: PROPHYLAXIS AGAINST TRANSPLANT REJECTION
     Dosage: 360 MG, BID
     Dates: start: 20081023
  3. OMEPRAZOLE [Concomitant]
     Dosage: UNK
  4. AMLODIPINE W/VALSARTAN [Concomitant]
     Indication: HYPERTENSION
  5. CALCIUM CARBONATE [Concomitant]
     Indication: PROPHYLAXIS
  6. COLECALCIFEROL [Concomitant]
     Indication: PROPHYLAXIS

REACTIONS (5)
  - CYTOMEGALOVIRUS INFECTION [None]
  - DIARRHOEA [None]
  - FATIGUE [None]
  - HEPATITIS [None]
  - NEPHRITIS [None]
